FAERS Safety Report 8146775-X (Version None)
Quarter: 2012Q1

REPORT INFORMATION
  Report Type: 
  Country: None (occurrence: None)
  Receive Date: 20120217
  Receipt Date: 20111006
  Transmission Date: 20120608
  Serious: No
  Sender: FDA-Public Use
  Company Number: US-ABBOTT-11P-163-0861235-00

PATIENT
  Sex: Male
  Weight: 80.812 kg

DRUGS (2)
  1. SIMCOR [Suspect]
     Indication: PRODUCT USED FOR UNKNOWN INDICATION
     Dates: start: 20111003
  2. CLARITIN [Concomitant]
     Indication: FLUSHING

REACTIONS (1)
  - FLUSHING [None]
